FAERS Safety Report 9563318 (Version 2)
Quarter: 2013Q3

REPORT INFORMATION
  Report Type: Spontaneous
  Country: IN (occurrence: IN)
  Receive Date: 20130927
  Receipt Date: 20130927
  Transmission Date: 20140515
  Serious: Yes (Death)
  Sender: FDA-Public Use
  Company Number: IN-ASTRAZENECA-2013SE70093

PATIENT
  Sex: Male

DRUGS (5)
  1. BRILINTA [Suspect]
     Route: 048
  2. T. ASPIRIN [Concomitant]
  3. ROSUVASTATIN [Concomitant]
  4. T. CARDIVAS [Concomitant]
  5. T. DYTOR [Concomitant]

REACTIONS (1)
  - Cerebral thrombosis [Fatal]
